FAERS Safety Report 4985914-6 (Version None)
Quarter: 2006Q2

REPORT INFORMATION
  Report Type: 
  Country: None (occurrence: None)
  Receive Date: 20060421
  Receipt Date: 20060413
  Transmission Date: 20061013
  Serious: Yes (Death)
  Sender: FDA-Public Use
  Company Number: 200610457GDS

PATIENT
  Age: 73 Year
  Sex: Male

DRUGS (6)
  1. CIPRO [Suspect]
     Indication: SKIN ULCER
  2. ASPIRIN [Concomitant]
  3. LOSEC [Concomitant]
  4. METOPROLOL [Concomitant]
  5. NIFEDIPINE [Concomitant]
  6. OXYBUTYN [Concomitant]

REACTIONS (6)
  - ALANINE AMINOTRANSFERASE INCREASED [None]
  - ASPARTATE AMINOTRANSFERASE INCREASED [None]
  - BLOOD ALKALINE PHOSPHATASE INCREASED [None]
  - HYPERBILIRUBINAEMIA [None]
  - JAUNDICE [None]
  - LIVER DISORDER [None]
